FAERS Safety Report 8666751 (Version 2)
Quarter: 2012Q4

REPORT INFORMATION
  Report Type: 
  Country: US (occurrence: US)
  Receive Date: 20120716
  Receipt Date: 20120907
  Transmission Date: 20130627
  Serious: Yes (Other)
  Sender: FDA-Public Use
  Company Number: US-ASTRAZENECA-2012SE45811

PATIENT
  Age: 66 Day
  Sex: Male
  Weight: 65.8 kg

DRUGS (9)
  1. SYMBICORT [Suspect]
     Indication: CHRONIC OBSTRUCTIVE PULMONARY DISEASE
     Dosage: 160/4.5ug TWO TIMES A DAY
     Route: 055
     Dates: start: 2010
  2. PLAVIX [Concomitant]
     Indication: CARDIAC DISORDER
     Route: 048
  3. ISOSORBIDE MONOTRATE [Concomitant]
     Indication: CARDIAC DISORDER
     Route: 048
  4. PRAVASTATIN [Concomitant]
     Indication: BLOOD CHOLESTEROL INCREASED
     Route: 048
  5. FLEXORIL [Concomitant]
     Indication: BACK PAIN
     Route: 048
  6. SPIRIVA [Concomitant]
     Indication: CHRONIC OBSTRUCTIVE PULMONARY DISEASE
  7. OXYCODONE [Concomitant]
     Indication: BACK PAIN
     Route: 048
  8. OXYCONTIN [Concomitant]
     Indication: BACK PAIN
     Route: 048
  9. OXYCONTIN [Concomitant]
     Indication: BACK PAIN
     Route: 048

REACTIONS (5)
  - Myocardial infarction [Unknown]
  - Chest discomfort [Unknown]
  - Night sweats [Unknown]
  - Weight decreased [Unknown]
  - Pneumonia [Unknown]
